FAERS Safety Report 10932032 (Version 15)
Quarter: 2018Q2

REPORT INFORMATION
  Report Type: Report from Study
  Country: JP (occurrence: JP)
  Receive Date: 20150319
  Receipt Date: 20180411
  Transmission Date: 20180711
  Serious: Yes (Hospitalization, Other)
  Sender: FDA-Public Use
  Company Number: JP-BRISTOL-MYERS SQUIBB COMPANY-BMS-2015-016256

PATIENT
  Age: 63 Year
  Sex: Female

DRUGS (6)
  1. NIVOLUMAB [Suspect]
     Active Substance: NIVOLUMAB
     Indication: MALIGNANT MELANOMA
     Dosage: 2 MG/KG, Q3WK
     Route: 041
     Dates: start: 20141028
  2. NOVORAPID [Suspect]
     Active Substance: INSULIN ASPART
     Indication: FULMINANT TYPE 1 DIABETES MELLITUS
     Dosage: UNK
     Route: 058
     Dates: start: 20150307
  3. NIVOLUMAB [Suspect]
     Active Substance: NIVOLUMAB
     Indication: PRODUCT USED FOR UNKNOWN INDICATION
     Dosage: 2 MG/KG, Q3WK
     Route: 041
     Dates: start: 20141211, end: 20151015
  4. ZOMETA [Suspect]
     Active Substance: ZOLEDRONIC ACID
     Indication: METASTASES TO SPINE
     Dosage: UNK
     Route: 065
     Dates: start: 20141029
  5. LANTUS [Suspect]
     Active Substance: INSULIN GLARGINE
     Indication: FULMINANT TYPE 1 DIABETES MELLITUS
     Dosage: 6 IU, QD
     Route: 058
     Dates: start: 20150307, end: 20150521
  6. TRESIBA [Suspect]
     Active Substance: INSULIN DEGLUDEC
     Indication: FULMINANT TYPE 1 DIABETES MELLITUS
     Dosage: 12 IU, QD
     Route: 058
     Dates: start: 20150521

REACTIONS (6)
  - Malignant neoplasm progression [Unknown]
  - Liver disorder [Recovered/Resolved]
  - Leukoderma [Not Recovered/Not Resolved]
  - Off label use [Unknown]
  - Off label use [Unknown]
  - Fulminant type 1 diabetes mellitus [Not Recovered/Not Resolved]

NARRATIVE: CASE EVENT DATE: 20141028
